FAERS Safety Report 4358408-9 (Version None)
Quarter: 2004Q2

REPORT INFORMATION
  Report Type: 
  Country: None (occurrence: None)
  Receive Date: 20040514
  Receipt Date: 20040324
  Transmission Date: 20050107
  Serious: Yes (Hospitalization)
  Sender: FDA-Public Use
  Company Number: JP-ROCHE-362752

PATIENT
  Age: 61 Year
  Sex: Female
  Weight: 61.9 kg

DRUGS (3)
  1. PEGASYS [Suspect]
     Indication: HEPATITIS C
     Route: 058
     Dates: start: 20040108, end: 20040317
  2. URSO [Concomitant]
     Route: 048
  3. SELBEX [Concomitant]
     Indication: GASTRIC ULCER
     Route: 048

REACTIONS (1)
  - BRONCHITIS [None]
